FAERS Safety Report 23600686 (Version 1)
Quarter: 2024Q1

REPORT INFORMATION
  Report Type: Spontaneous
  Country: US (occurrence: None)
  Receive Date: 20240305
  Receipt Date: 20240305
  Transmission Date: 20240409
  Serious: Yes (Hospitalization)
  Sender: FDA-Public Use
  Company Number: None

PATIENT
  Sex: Female

DRUGS (3)
  1. EVEROLIMUS [Suspect]
     Active Substance: EVEROLIMUS
     Indication: Renal cancer
     Dosage: 5MG DAILY ORAL?
     Route: 048
     Dates: start: 202401
  2. EVEROLIMUS [Concomitant]
     Active Substance: EVEROLIMUS
  3. LENVIMA [Concomitant]
     Active Substance: LENVATINIB

REACTIONS (1)
  - Hospitalisation [None]
